FAERS Safety Report 8816151 (Version 2)
Quarter: 2012Q4

REPORT INFORMATION
  Report Type: 
  Country: US (occurrence: US)
  Receive Date: 20120929
  Receipt Date: 20121110
  Transmission Date: 20130627
  Serious: No
  Sender: FDA-Public Use
  Company Number: US-009507513-1209USA006430

PATIENT
  Sex: Female

DRUGS (2)
  1. PEGINTRON [Suspect]
     Indication: HEPATITIS C
     Dosage: UNK
     Dates: start: 20120912
  2. REBETOL [Suspect]
     Indication: HEPATITIS C
     Dosage: UNK
     Dates: start: 20120912

REACTIONS (6)
  - Insomnia [Unknown]
  - Myalgia [Unknown]
  - Chills [Unknown]
  - Headache [Unknown]
  - Nausea [Unknown]
  - Bone pain [Unknown]
